FAERS Safety Report 10437966 (Version 1)
Quarter: 2014Q3

REPORT INFORMATION
  Report Type: Spontaneous
  Country: FR (occurrence: FR)
  Receive Date: 20140908
  Receipt Date: 20140908
  Transmission Date: 20150326
  Serious: Yes (Other)
  Sender: FDA-Public Use
  Company Number: FR-SHIRE-FR201405433

PATIENT
  Age: 58 Year
  Sex: Female

DRUGS (15)
  1. FIRAZYR [Suspect]
     Active Substance: ICATIBANT ACETATE
     Indication: PRODUCT USED FOR UNKNOWN INDICATION
     Dosage: 30 MG, UNKNOWN
     Route: 058
     Dates: start: 20140729
  2. APRANAX                            /00256201/ [Suspect]
     Active Substance: NAPROXEN
     Dosage: UNK, UNKNOWN
     Route: 065
     Dates: start: 20140722, end: 20140728
  3. APROVEL [Concomitant]
     Active Substance: IRBESARTAN
     Indication: PRODUCT USED FOR UNKNOWN INDICATION
     Dosage: 150 MG, 1X/DAY:QD
     Route: 065
  4. SOLU-MEDROL [Concomitant]
     Active Substance: METHYLPREDNISOLONE SODIUM SUCCINATE
     Indication: OEDEMA
     Dosage: 100 MG, UNKNOWN
     Route: 065
     Dates: start: 20140728
  5. GLUCOPHAGE [Concomitant]
     Active Substance: METFORMIN HYDROCHLORIDE
     Indication: PRODUCT USED FOR UNKNOWN INDICATION
     Dosage: 1000 MG, 3X/DAY:TID
     Route: 065
  6. LYRICA [Concomitant]
     Active Substance: PREGABALIN
     Indication: PRODUCT USED FOR UNKNOWN INDICATION
     Dosage: 75 MG, 2X/DAY:BID
     Route: 065
  7. POLARAMINE [Suspect]
     Active Substance: DEXCHLORPHENIRAMINE MALEATE
     Indication: OEDEMA
     Dosage: UNK, UNKNOWN
     Route: 042
     Dates: start: 20140728, end: 20140731
  8. VICTOZA [Concomitant]
     Active Substance: LIRAGLUTIDE
     Indication: PRODUCT USED FOR UNKNOWN INDICATION
     Dosage: 6 MG, 1X/DAY:QD
     Route: 065
  9. NOVONORM [Concomitant]
     Active Substance: REPAGLINIDE
     Indication: PRODUCT USED FOR UNKNOWN INDICATION
     Dosage: 0.5 MG, 2X/DAY:BID
     Route: 065
  10. NAPROXEN. [Concomitant]
     Active Substance: NAPROXEN
     Indication: PRURITUS
     Dosage: UNK
     Dates: start: 201407
  11. AERIUS [Concomitant]
     Active Substance: DESLORATADINE
     Indication: OEDEMA
     Dosage: 5 MG, ONE DOSE
     Route: 065
     Dates: start: 20140728
  12. SOLUPRED                           /00016201/ [Concomitant]
     Active Substance: PREDNISOLONE
     Indication: OEDEMA
     Dosage: 60 MG, UNKNOWN
     Route: 065
     Dates: start: 2014
  13. NOVONORM [Concomitant]
     Active Substance: REPAGLINIDE
     Dosage: 1 MG, 1X/DAY:QD
     Route: 065
  14. MIOREL [Suspect]
     Active Substance: ORPHENADRINE
     Indication: CERVICOBRACHIAL SYNDROME
     Dosage: UNK, UNKNOWN
     Route: 065
     Dates: start: 20140722, end: 20140728
  15. TAHOR [Concomitant]
     Active Substance: ATORVASTATIN CALCIUM
     Indication: PRODUCT USED FOR UNKNOWN INDICATION
     Dosage: 10 MG, 1X/DAY:QD
     Route: 065

REACTIONS (1)
  - Thrombocytopenia [Recovered/Resolved]

NARRATIVE: CASE EVENT DATE: 201408
